FAERS Safety Report 4642676-X (Version None)
Quarter: 2005Q2

REPORT INFORMATION
  Report Type: 
  Country: None (occurrence: None)
  Receive Date: 20050422
  Receipt Date: 20040310
  Transmission Date: 20051028
  Serious: Yes (Other)
  Sender: FDA-Public Use
  Company Number: GB-JNJFOC-20050403786

PATIENT
  Age: 63 Year
  Weight: 70 kg

DRUGS (3)
  1. IBUPROFEN [Suspect]
     Indication: OSTEOARTHRITIS
     Route: 049
     Dates: start: 20040120, end: 20040205
  2. PREMPAK-C [Concomitant]
     Route: 049
  3. PREMPAK-C [Concomitant]
     Route: 049

REACTIONS (1)
  - VISUAL DISTURBANCE [None]
